FAERS Safety Report 8937145 (Version 1)
Quarter: 2012Q4

REPORT INFORMATION
  Report Type: Spontaneous
  Country: AU (occurrence: None)
  Receive Date: 20121123
  Receipt Date: 20121123
  Transmission Date: 20130627
  Serious: Yes (Other)
  Sender: FDA-Public Use
  Company Number: 2012AP004029

PATIENT
  Age: 38 Year
  Sex: Male

DRUGS (2)
  1. ALPRAZOLAM [Suspect]
     Indication: SEDATIVE THERAPY
     Route: 048
     Dates: start: 20121104
  2. METHADONE (METHADONE) [Concomitant]

REACTIONS (1)
  - Brain injury [None]
